FAERS Safety Report 5157607-6 (Version None)
Quarter: 2006Q4

REPORT INFORMATION
  Report Type: 
  Country: None (occurrence: None)
  Receive Date: 20061127
  Receipt Date: 20061026
  Transmission Date: 20070319
  Serious: Yes (Life-Threatening, Hospitalization)
  Sender: FDA-Public Use
  Company Number: JP-MERCK-0610USA15448

PATIENT
  Age: 77 Year
  Sex: Female

DRUGS (4)
  1. FOSAMAX [Suspect]
     Indication: OSTEOPOROSIS
     Route: 048
     Dates: start: 20061024, end: 20061024
  2. ETODOLAC [Suspect]
     Indication: PAIN
     Route: 048
     Dates: end: 20061024
  3. MUCOSTA [Suspect]
     Indication: PROPHYLAXIS AGAINST GASTROINTESTINAL ULCER
     Route: 048
     Dates: end: 20061024
  4. EPERISONE HYDROCHLORIDE [Suspect]
     Indication: PAIN
     Route: 048
     Dates: end: 20061024

REACTIONS (1)
  - GASTRIC ULCER HAEMORRHAGE [None]
